FAERS Safety Report 21287196 (Version 14)
Quarter: 2024Q4

REPORT INFORMATION
  Report Type: Spontaneous
  Country: US (occurrence: US)
  Receive Date: 20220902
  Receipt Date: 20241011
  Transmission Date: 20250115
  Serious: No
  Sender: PFIZER
  Company Number: US-PFIZER INC-PV202200054703

PATIENT
  Age: 54 Year
  Sex: Male

DRUGS (1)
  1. TIKOSYN [Suspect]
     Active Substance: DOFETILIDE
     Dosage: 2 CAPSULES TWICE A DAY
     Route: 048

REACTIONS (2)
  - Product prescribing error [Unknown]
  - Wrong strength [Unknown]
